FAERS Safety Report 10260865 (Version 1)
Quarter: 2014Q2

REPORT INFORMATION
  Report Type: Spontaneous
  Country: FR (occurrence: None)
  Receive Date: 20140623
  Receipt Date: 20140623
  Transmission Date: 20141212
  Serious: Yes (Hospitalization, Other)
  Sender: FDA-Public Use
  Company Number: 2014000190

PATIENT
  Age: 83 Year
  Sex: Male
  Weight: 68 kg

DRUGS (28)
  1. ACEON [Suspect]
     Indication: HYPERTENSION
     Route: 048
     Dates: start: 20140428, end: 20140503
  2. FEIBA [Suspect]
     Indication: ACQUIRED HAEMOPHILIA
     Route: 042
     Dates: start: 20140423, end: 20140505
  3. LOXEN [Suspect]
     Indication: HYPERTENSION
     Route: 048
     Dates: end: 20140505
  4. IMOVANE [Suspect]
     Indication: INSOMNIA
     Route: 048
     Dates: end: 20140505
  5. XATRAL [Suspect]
     Indication: PRODUCT USED FOR UNKNOWN INDICATION
     Route: 048
     Dates: start: 20140424, end: 20140505
  6. ALPRAZOLAM [Suspect]
     Indication: PRODUCT USED FOR UNKNOWN INDICATION
     Route: 048
     Dates: start: 20140501, end: 20140505
  7. ZELITREX [Suspect]
     Indication: HERPES SIMPLEX
     Route: 048
     Dates: start: 20140430, end: 20140503
  8. LOXEN [Suspect]
     Indication: PRODUCT USED FOR UNKNOWN INDICATION
     Route: 048
     Dates: start: 20140430, end: 20140504
  9. SOLUMEDROL (METHYLPREDNISOLONE SODIUM SUCCINATE) [Concomitant]
  10. TAZOCILLINE (PIPERACILLIN SODIUM, TAZOBACTAM SODIUM) [Concomitant]
  11. CIPROFLOXACIN (CIPROFLOXACIN) [Concomitant]
  12. DOLIPRANE (PARACETAMOL) [Concomitant]
  13. OMEPRAZOLE (OMEPRAZOLE) [Concomitant]
  14. METOCLOPRAMIDE (METOCLOPRAMIDE) [Concomitant]
  15. ESOMEPRAZOLE MAGNESIUM (ESOMEPRAZOLE MAGNESIUM) [Concomitant]
  16. PRIMPERAN (METOCLOPRAMIDE HYDROCHLORIDE) [Concomitant]
  17. GLUCOSE (GLUCOSE) [Concomitant]
  18. CEFTRIAXONE (CEFTRIAXONE) [Concomitant]
  19. LACTULOSE (LACTULOSE) [Concomitant]
  20. ASCORBIC ACID (ASCORBIC ACID) [Concomitant]
  21. CORTANCYL (PREDNISONE) [Concomitant]
  22. PLAVIX (CLOPIDOGREL SUFLATE) [Concomitant]
  23. RASILEZ (ALISKIREN) [Concomitant]
  24. AMLODIPINE BESYLATE (AMLODIPINE BESYLATE) [Concomitant]
  25. OLMESARTAN MEDOXOMIL (OLMESARTAN MEDOXOMIL) [Concomitant]
  26. ADENURIC (FEBUXOSTAT) [Concomitant]
  27. CRESTOR (ROSUVASTATIN CALCIUM) [Concomitant]
  28. NEBILOX (NEBIVOLOL HYDROCHLORIDE) [Concomitant]

REACTIONS (4)
  - Disseminated intravascular coagulation [None]
  - Thrombocytopenia [None]
  - Hypotension [None]
  - Asthenia [None]
